FAERS Safety Report 20035388 (Version 1)
Quarter: 2021Q4

REPORT INFORMATION
  Report Type: Spontaneous
  Country: NL (occurrence: NL)
  Receive Date: 20211104
  Receipt Date: 20211104
  Transmission Date: 20220304
  Serious: Yes (Other)
  Sender: FDA-Public Use
  Company Number: NL-OTSUKA-2016_025794

PATIENT
  Sex: Female

DRUGS (1)
  1. ABILIFY MAINTENA [Suspect]
     Active Substance: ARIPIPRAZOLE
     Indication: Product used for unknown indication
     Dosage: 400 MG, EVERY 4 WEEKS
     Route: 030

REACTIONS (8)
  - Mental impairment [Unknown]
  - Visual impairment [Unknown]
  - Limb discomfort [Unknown]
  - Gait disturbance [Unknown]
  - Pain in extremity [Unknown]
  - Fatigue [Unknown]
  - Asthenia [Unknown]
  - Dyskinesia [Unknown]
